FAERS Safety Report 6245337-9 (Version None)
Quarter: 2009Q2

REPORT INFORMATION
  Report Type: 
  Country: None (occurrence: None)
  Receive Date: 20090623
  Receipt Date: 20090623
  Transmission Date: 20091009
  Serious: No
  Sender: FDA-Public Use
  Company Number: None

PATIENT
  Age: 11 Year
  Sex: Female
  Weight: 52.7 kg

DRUGS (1)
  1. DEVI EPI-PEN 0.3MI 1:1000 DEY [Suspect]
     Indication: DRUG ADMINISTRATION ERROR
     Dosage: 0.3 NL ONE TIME IM
     Route: 030
     Dates: start: 20090611, end: 20090611

REACTIONS (3)
  - ABDOMINAL PAIN UPPER [None]
  - MEDICATION ERROR [None]
  - PRODUCT OUTER PACKAGING ISSUE [None]
